FAERS Safety Report 14859685 (Version 5)
Quarter: 2019Q2

REPORT INFORMATION
  Report Type: Spontaneous
  Country: US (occurrence: US)
  Receive Date: 20180508
  Receipt Date: 20190424
  Transmission Date: 20190711
  Serious: Yes (Hospitalization)
  Sender: FDA-Public Use
  Company Number: US-PFIZER INC-2018184408

PATIENT
  Age: 65 Year
  Sex: Male
  Weight: 69.4 kg

DRUGS (5)
  1. LYRICA [Suspect]
     Active Substance: PREGABALIN
     Indication: NEUROPATHY PERIPHERAL
     Dosage: ONCE A DAY BY MOUTH FOR 3 DAYS, THEN TWICE A DAY FOR 3 DAYS, AND THEN 3 TIMES A DAY
     Route: 048
     Dates: start: 20180428
  2. LYRICA [Suspect]
     Active Substance: PREGABALIN
     Dosage: ONCE A DAY BY MOUTH FOR 3 DAYS, THEN TWICE A DAY FOR 3 DAYS, AND THEN 3 TIMES A DAY
     Route: 048
     Dates: start: 20180428
  3. LYRICA [Suspect]
     Active Substance: PREGABALIN
     Indication: PAIN
     Dosage: ONCE A DAY BY MOUTH FOR 3 DAYS, THEN TWICE A DAY FOR 3 DAYS, AND THEN 3 TIMES A DAY
     Route: 048
     Dates: start: 20180428
  4. LYRICA [Suspect]
     Active Substance: PREGABALIN
     Dosage: 50 MG, UNK (DAYS SUPPLY 30)
  5. LYRICA [Suspect]
     Active Substance: PREGABALIN
     Dosage: 60 MG, DAILY (20 MG/ 3PER DAY)
     Dates: start: 20180428, end: 20180506

REACTIONS (8)
  - Dizziness [Unknown]
  - Fall [Unknown]
  - Balance disorder [Not Recovered/Not Resolved]
  - Asthenia [Unknown]
  - Insomnia [Recovered/Resolved]
  - Drug ineffective [Not Recovered/Not Resolved]
  - Constipation [Unknown]
  - Fatigue [Unknown]

NARRATIVE: CASE EVENT DATE: 20180428
